FAERS Safety Report 13654035 (Version 3)
Quarter: 2017Q4

REPORT INFORMATION
  Report Type: Report from Study
  Country: FR (occurrence: FR)
  Receive Date: 20170614
  Receipt Date: 20171103
  Transmission Date: 20180320
  Serious: Yes (Death, Hospitalization, Other)
  Sender: FDA-Public Use
  Company Number: FR-BRISTOL-MYERS SQUIBB COMPANY-BMS-2017-050160

PATIENT
  Age: 63 Year
  Sex: Male

DRUGS (3)
  1. INSULIN [Concomitant]
     Active Substance: INSULIN NOS
     Indication: PRODUCT USED FOR UNKNOWN INDICATION
     Route: 065
  2. MORPHINE [Concomitant]
     Active Substance: MORPHINE
     Indication: PAIN
     Route: 065
  3. NIVOLUMAB [Suspect]
     Active Substance: NIVOLUMAB
     Indication: LUNG NEOPLASM MALIGNANT
     Dosage: 240 MG, UNK
     Route: 042
     Dates: start: 20170224, end: 20170310

REACTIONS (8)
  - Malignant neoplasm progression [Unknown]
  - Hypothyroidism [Recovered/Resolved]
  - Abdominal cavity drainage [Recovered/Resolved]
  - Seizure [Recovered/Resolved]
  - Dyspnoea [Unknown]
  - Ascites [Unknown]
  - General physical health deterioration [Fatal]
  - Hyperglycaemia [Unknown]

NARRATIVE: CASE EVENT DATE: 20170308
